FAERS Safety Report 5822965-3 (Version None)
Quarter: 2008Q3

REPORT INFORMATION
  Report Type: 
  Country: None (occurrence: None)
  Receive Date: 20080725
  Receipt Date: 20080718
  Transmission Date: 20090109
  Serious: Yes (Other)
  Sender: FDA-Public Use
  Company Number: A0739416A

PATIENT
  Age: 3 Year
  Sex: Male

DRUGS (15)
  1. LANVIS [Suspect]
     Dosage: 40MG PER DAY
     Route: 048
  2. ACETAMINOPHEN [Concomitant]
     Route: 048
  3. ALBUMIN (HUMAN) [Concomitant]
     Route: 042
  4. CYCLOPHOSPHAMIDE [Concomitant]
     Route: 042
  5. CYTARABINE [Concomitant]
     Route: 042
  6. DEFIBROTIDE [Concomitant]
     Route: 042
  7. DIMENHYDRINATE [Concomitant]
     Route: 048
  8. METHOTREXATE SODIUM [Concomitant]
     Route: 037
  9. MORPHINE [Concomitant]
     Route: 042
  10. RANITIDINE HCL [Concomitant]
     Route: 048
  11. SEPTRA [Concomitant]
     Route: 048
  12. TIMENTIN [Concomitant]
     Route: 042
  13. TOBRAMYCIN [Concomitant]
     Route: 042
  14. VANCOMYCIN HCL [Concomitant]
     Route: 042
  15. VITAMIN K TAB [Concomitant]
     Route: 042

REACTIONS (6)
  - ASCITES [None]
  - BLOOD BILIRUBIN INCREASED [None]
  - HEPATOMEGALY [None]
  - JAUNDICE [None]
  - PLEURAL EFFUSION [None]
  - VENOOCCLUSIVE LIVER DISEASE [None]
